FAERS Safety Report 9471796 (Version 1)
Quarter: 2013Q3

REPORT INFORMATION
  Report Type: Spontaneous
  Country: US (occurrence: None)
  Receive Date: 20130819
  Receipt Date: 20130819
  Transmission Date: 20140515
  Serious: Yes (Hospitalization, Other)
  Sender: FDA-Public Use
  Company Number: AUR-APL-2013-06718

PATIENT
  Age: 48 Year
  Sex: Male

DRUGS (2)
  1. LAMOTRIGINE [Suspect]
     Indication: PRODUCT USED FOR UNKNOWN INDICATION
     Dosage: DOUBLE DOSE
     Route: 048
  2. TOPIRAMATE (TOPIRAMATE) [Concomitant]

REACTIONS (6)
  - Toxicity to various agents [None]
  - Extra dose administered [None]
  - Muscular weakness [None]
  - Ataxia [None]
  - Confusional state [None]
  - Neurotoxicity [None]
